FAERS Safety Report 5161832-8 (Version None)
Quarter: 2006Q4

REPORT INFORMATION
  Report Type: 
  Country: None (occurrence: None)
  Receive Date: 20061130
  Receipt Date: 20060925
  Transmission Date: 20070319
  Serious: No
  Sender: FDA-Public Use
  Company Number: US-GLAXOSMITHKLINE-A0621577A

PATIENT
  Sex: Male

DRUGS (2)
  1. WELLBUTRIN XL [Suspect]
     Indication: DEPRESSION
     Route: 048
  2. KLONOPIN [Concomitant]
     Indication: ANXIETY
     Route: 048

REACTIONS (5)
  - ANXIETY [None]
  - DISTURBANCE IN ATTENTION [None]
  - NERVOUSNESS [None]
  - RESTLESS LEGS SYNDROME [None]
  - RESTLESSNESS [None]
